FAERS Safety Report 4500794-0 (Version None)
Quarter: 2004Q4

REPORT INFORMATION
  Report Type: 
  Country: None (occurrence: None)
  Receive Date: 20041109
  Receipt Date: 20041026
  Transmission Date: 20050328
  Serious: Yes (Death)
  Sender: FDA-Public Use
  Company Number: 209628

PATIENT
  Age: 52 Year
  Sex: Male
  Weight: 73.9 kg

DRUGS (7)
  1. AVASTIN [Suspect]
     Indication: COLON CANCER
     Dosage: 340 MG, QOW, INTRAVENOUS
     Route: 042
     Dates: end: 20041007
  2. IRINOTECAN HCL [Concomitant]
  3. FLUOROURACIL [Concomitant]
  4. LEUCOVORIN (LEUCOVORIN CALCIUM) [Concomitant]
  5. DILANTIN [Concomitant]
  6. PRIMIDONE [Concomitant]
  7. CRESTOR [Concomitant]

REACTIONS (2)
  - CARDIAC ARREST [None]
  - PULMONARY EMBOLISM [None]
